FAERS Safety Report 13918151 (Version 3)
Quarter: 2018Q4

REPORT INFORMATION
  Report Type: Spontaneous
  Country: US (occurrence: US)
  Receive Date: 20170829
  Receipt Date: 20181221
  Transmission Date: 20190204
  Serious: No
  Sender: FDA-Public Use
  Company Number: US-SA-2016SA235448

PATIENT
  Age: 11 Year
  Sex: Female

DRUGS (1)
  1. FABRAZYME [Suspect]
     Active Substance: AGALSIDASE BETA
     Indication: FABRY^S DISEASE
     Dosage: 55 MG,QOW
     Route: 041

REACTIONS (1)
  - Malaise [Unknown]

NARRATIVE: CASE EVENT DATE: 2016
